FAERS Safety Report 14998701 (Version 2)
Quarter: 2018Q3

REPORT INFORMATION
  Report Type: Spontaneous
  Country: US (occurrence: US)
  Receive Date: 20180612
  Receipt Date: 20180712
  Transmission Date: 20181010
  Serious: Yes (Other)
  Sender: FDA-Public Use
  Company Number: US-ROCHE-2137991

PATIENT
  Sex: Female

DRUGS (1)
  1. GAZYVA [Suspect]
     Active Substance: OBINUTUZUMAB
     Indication: CHRONIC LYMPHOCYTIC LEUKAEMIA
     Dosage: DAY ONE 100 MG; ONGOING: YES
     Route: 042
     Dates: start: 20180605

REACTIONS (3)
  - Pyrexia [Unknown]
  - Arthralgia [Unknown]
  - Seizure [Unknown]

NARRATIVE: CASE EVENT DATE: 20180605
